FAERS Safety Report 9784019 (Version 3)
Quarter: 2014Q1

REPORT INFORMATION
  Report Type: Report from Study
  Country: US (occurrence: US)
  Receive Date: 20131226
  Receipt Date: 20140114
  Transmission Date: 20141002
  Serious: Yes (Hospitalization)
  Sender: FDA-Public Use
  Company Number: US-JNJFOC-20131213093

PATIENT
  Age: 15 Year
  Sex: Female
  Weight: 56.3 kg

DRUGS (4)
  1. REMICADE [Suspect]
     Indication: INFLAMMATORY BOWEL DISEASE
     Route: 042
     Dates: start: 20080424
  2. ONDANSETRON [Concomitant]
     Route: 065
  3. MULTIVITAMINS [Concomitant]
     Route: 065
  4. LANSOPRAZOLE [Concomitant]
     Route: 065

REACTIONS (1)
  - Perirectal abscess [Recovered/Resolved]
